FAERS Safety Report 7097864-2 (Version None)
Quarter: 2010Q4

REPORT INFORMATION
  Report Type: 
  Country: None (occurrence: None)
  Receive Date: 20101112
  Receipt Date: 20100817
  Transmission Date: 20110411
  Serious: Yes (Hospitalization, Other)
  Sender: FDA-Public Use
  Company Number: US-BAYER-201028554NA

PATIENT
  Age: 51 Year
  Sex: Female

DRUGS (5)
  1. YAZ [Suspect]
     Route: 048
     Dates: start: 20000101, end: 20100125
  2. YASMIN [Suspect]
     Route: 048
     Dates: start: 20000101, end: 20100125
  3. DEPAKOTE [Concomitant]
     Indication: THYROID DISORDER
  4. LITHIUM [Concomitant]
     Indication: BIPOLAR DISORDER
  5. SYNTHROID [Concomitant]
     Indication: THYROID DISORDER

REACTIONS (2)
  - DEEP VEIN THROMBOSIS [None]
  - GALLBLADDER INJURY [None]
